FAERS Safety Report 24134568 (Version 5)
Quarter: 2024Q4

REPORT INFORMATION
  Report Type: Spontaneous
  Country: US (occurrence: US)
  Receive Date: 20240725
  Receipt Date: 20241008
  Transmission Date: 20250114
  Serious: No
  Sender: BIOVITRUM
  Company Number: US-BIOVITRUM-2024-US-010140

PATIENT
  Age: 82 Year
  Sex: Female

DRUGS (12)
  1. VONJO [Suspect]
     Active Substance: PACRITINIB
     Indication: Essential thrombocythaemia
     Dosage: TWICE A DAY
     Route: 048
     Dates: start: 20240718
  2. VONJO [Suspect]
     Active Substance: PACRITINIB
     Dosage: DECREASED THE DOSE TO ONE CAPSULE TWICE A DAY
     Route: 048
  3. AMIODARONE HYDROCHLORIDE [Concomitant]
     Active Substance: AMIODARONE HYDROCHLORIDE
     Indication: Product used for unknown indication
     Route: 048
  4. CALCIUM CARBONATE [Concomitant]
     Active Substance: CALCIUM CARBONATE
     Indication: Product used for unknown indication
     Dosage: 1250
     Route: 048
  5. GARLIC VITAMIN [Concomitant]
     Indication: Product used for unknown indication
  6. GLUCOSAMINE CHONDROITIN DS [Concomitant]
     Indication: Product used for unknown indication
     Route: 048
  7. METOPROLOL TARTRATE [Concomitant]
     Active Substance: METOPROLOL TARTRATE
     Indication: Product used for unknown indication
     Dosage: 25
     Route: 048
  8. OMEGA-3 ACIDS [Concomitant]
     Active Substance: OMEGA-3 FATTY ACIDS
     Indication: Product used for unknown indication
     Route: 048
  9. PYRIDOXINE [Concomitant]
     Active Substance: PYRIDOXINE
     Indication: Product used for unknown indication
     Route: 048
  10. VITAMIN B12 [Concomitant]
     Active Substance: CYANOCOBALAMIN
     Indication: Product used for unknown indication
     Route: 048
  11. LOW DOSE ASPIRIN [Concomitant]
     Active Substance: ASPIRIN
     Indication: Product used for unknown indication
     Route: 048
  12. FAMOTIDINE [Concomitant]
     Active Substance: FAMOTIDINE
     Indication: Product used for unknown indication
     Route: 048

REACTIONS (6)
  - Off label use [Not Recovered/Not Resolved]
  - Diarrhoea [Unknown]
  - Product dose omission issue [Unknown]
  - Flatulence [Unknown]
  - Gastrooesophageal reflux disease [Unknown]
  - Contusion [Unknown]

NARRATIVE: CASE EVENT DATE: 20240718
